FAERS Safety Report 20232602 (Version 1)
Quarter: 2021Q4

REPORT INFORMATION
  Report Type: Spontaneous
  Country: BR (occurrence: BR)
  Receive Date: 20211227
  Receipt Date: 20211227
  Transmission Date: 20220303
  Serious: Yes (Other)
  Sender: FDA-Public Use
  Company Number: BR-PFIZER INC-202101789121

PATIENT
  Age: 90 Year
  Sex: Female

DRUGS (1)
  1. PREMARIN [Suspect]
     Active Substance: ESTROGENS, CONJUGATED

REACTIONS (7)
  - Drug dependence [Unknown]
  - Hot flush [Unknown]
  - Insomnia [Unknown]
  - Depressed mood [Unknown]
  - Blood oestrogen decreased [Unknown]
  - Dizziness [Unknown]
  - Decreased appetite [Unknown]
